FAERS Safety Report 4712147-0 (Version None)
Quarter: 2005Q3

REPORT INFORMATION
  Report Type: 
  Country: None (occurrence: None)
  Receive Date: 20050712
  Receipt Date: 20050630
  Transmission Date: 20060218
  Serious: Yes (Hospitalization, Other)
  Sender: FDA-Public Use
  Company Number: NSADSS2003009078

PATIENT
  Sex: Female
  Weight: 92.7 kg

DRUGS (8)
  1. DOXIL [Suspect]
     Route: 042
     Dates: start: 20020522, end: 20021204
  2. DOXIL [Suspect]
     Route: 042
     Dates: start: 20020522, end: 20021204
  3. DOXIL [Suspect]
     Route: 042
     Dates: start: 20020522, end: 20021204
  4. DOXIL [Suspect]
     Indication: OVARIAN CANCER
     Route: 042
     Dates: start: 20020522, end: 20021204
  5. GEMCITABINE [Suspect]
     Route: 042
     Dates: start: 20020522, end: 20021204
  6. GEMCITABINE [Suspect]
     Route: 042
     Dates: start: 20020522, end: 20021204
  7. GEMCITABINE [Suspect]
     Route: 042
     Dates: start: 20020522, end: 20021204
  8. GEMCITABINE [Suspect]
     Indication: OVARIAN CANCER
     Route: 042
     Dates: start: 20020522, end: 20021204

REACTIONS (3)
  - BLOOD CREATININE INCREASED [None]
  - HAEMOLYTIC URAEMIC SYNDROME [None]
  - HYPERTENSION [None]
